FAERS Safety Report 12799730 (Version 1)
Quarter: 2016Q3

REPORT INFORMATION
  Report Type: Spontaneous
  Country: HR (occurrence: HR)
  Receive Date: 20160930
  Receipt Date: 20160930
  Transmission Date: 20161109
  Serious: Yes (Hospitalization, Other)
  Sender: FDA-Public Use
  Company Number: HR-PFIZER INC-2016452826

PATIENT
  Sex: Male

DRUGS (2)
  1. SERTRALINE HCL [Suspect]
     Active Substance: SERTRALINE HYDROCHLORIDE
     Dosage: 1200 MG, (24 X 50MG)
     Route: 048
     Dates: start: 20160725
  2. NORMABEL [Suspect]
     Active Substance: DIAZEPAM
     Dosage: 40 MG, (20 X 2MG)
     Route: 048
     Dates: start: 20160725

REACTIONS (6)
  - Agitation [Unknown]
  - Toxicity to various agents [Unknown]
  - Intentional overdose [Unknown]
  - Suicidal behaviour [Unknown]
  - Tremor [Unknown]
  - Body temperature increased [Unknown]

NARRATIVE: CASE EVENT DATE: 20160726
